FAERS Safety Report 17518882 (Version 2)
Quarter: 2020Q2

REPORT INFORMATION
  Report Type: Report from Study
  Country: None (occurrence: US)
  Receive Date: 20200309
  Receipt Date: 20200525
  Transmission Date: 20200713
  Serious: No
  Sender: FDA-Public Use
  Company Number: US-ABBVIE-20P-163-3310016-00

PATIENT
  Age: 87 Year
  Sex: Female
  Weight: 54.03 kg

DRUGS (7)
  1. LISINOPRIL. [Concomitant]
     Active Substance: LISINOPRIL
     Indication: HYPERTENSION
  2. ROSUVASTATIN. [Concomitant]
     Active Substance: ROSUVASTATIN
     Indication: HYPOTHYROIDISM
  3. LASIX [Concomitant]
     Active Substance: FUROSEMIDE
     Indication: HYPOTHYROIDISM
  4. RINVOQ [Suspect]
     Active Substance: UPADACITINIB
     Indication: RHEUMATOID ARTHRITIS
     Route: 048
     Dates: start: 202001
  5. LEVOXYL [Concomitant]
     Active Substance: LEVOTHYROXINE SODIUM
     Indication: HYPOTHYROIDISM
  6. ASPIRIN. [Concomitant]
     Active Substance: ASPIRIN
     Indication: HYPOTHYROIDISM
  7. CARTIA [Concomitant]
     Indication: HYPERTENSION

REACTIONS (2)
  - Road traffic accident [Recovered/Resolved]
  - Arthralgia [Not Recovered/Not Resolved]

NARRATIVE: CASE EVENT DATE: 20200226
